FAERS Safety Report 7532061-5 (Version None)
Quarter: 2011Q2

REPORT INFORMATION
  Report Type: 
  Country: None (occurrence: None)
  Receive Date: 20110608
  Receipt Date: 20110602
  Transmission Date: 20111010
  Serious: No
  Sender: FDA-Public Use
  Company Number: US-PFIZER INC-2011120896

PATIENT
  Sex: Female
  Weight: 61.2 kg

DRUGS (3)
  1. ALAVERT [Suspect]
     Dosage: 10 MG, 1X/DAY
     Route: 048
     Dates: start: 20110602
  2. MONTELUKAST SODIUM [Suspect]
     Indication: HYPERSENSITIVITY
     Dosage: 10 MG, 1X/DAY
     Route: 048
     Dates: end: 20110531
  3. ALAVERT [Suspect]
     Indication: HYPERSENSITIVITY
     Dosage: 10 MG, 1X/DAY
     Route: 048
     Dates: start: 20100401, end: 20110531

REACTIONS (1)
  - VERTIGO [None]
